FAERS Safety Report 21390543 (Version 1)
Quarter: 2022Q3

REPORT INFORMATION
  Report Type: Report from Study
  Country: US (occurrence: US)
  Receive Date: 20220929
  Receipt Date: 20220929
  Transmission Date: 20221026
  Serious: Yes (Hospitalization)
  Sender: FDA-Public Use
  Company Number: US-JNJFOC-20220950996

PATIENT
  Sex: Male

DRUGS (6)
  1. INFLIXIMAB [Suspect]
     Active Substance: INFLIXIMAB
     Indication: Inflammatory bowel disease
     Route: 041
     Dates: start: 20130823, end: 20140109
  2. INFLIXIMAB [Suspect]
     Active Substance: INFLIXIMAB
     Route: 041
     Dates: start: 20180629, end: 20180720
  3. STELARA [Concomitant]
     Active Substance: USTEKINUMAB
     Dates: start: 20171110
  4. STELARA [Concomitant]
     Active Substance: USTEKINUMAB
     Dates: start: 20201015, end: 20211202
  5. HUMIRA [Concomitant]
     Active Substance: ADALIMUMAB
     Dates: start: 20140301, end: 20171026
  6. HUMIRA [Concomitant]
     Active Substance: ADALIMUMAB
     Dates: start: 20181018, end: 20211222

REACTIONS (1)
  - COVID-19 [Recovered/Resolved]

NARRATIVE: CASE EVENT DATE: 20211223
